FAERS Safety Report 5590106-6 (Version None)
Quarter: 2007Q4

REPORT INFORMATION
  Report Type: 
  Country: None (occurrence: None)
  Receive Date: 20071217
  Receipt Date: 20070905
  Transmission Date: 20080405
  Serious: No
  Sender: FDA-Public Use
  Company Number: BDI-010155

PATIENT
  Age: 21 Year
  Sex: Female

DRUGS (2)
  1. MULTIHANCE [Suspect]
     Indication: NUCLEAR MAGNETIC RESONANCE IMAGING BRAIN
     Dosage: 16 ML ONCE IV
     Route: 042
     Dates: start: 20070821, end: 20070821
  2. MULTIHANCE [Suspect]
     Indication: VISUAL DISTURBANCE
     Dosage: 16 ML ONCE IV
     Route: 042
     Dates: start: 20070821, end: 20070821

REACTIONS (1)
  - URTICARIA [None]
